FAERS Safety Report 8426198-6 (Version None)
Quarter: 2012Q2

REPORT INFORMATION
  Report Type: 
  Country: None (occurrence: None)
  Receive Date: 20120611
  Receipt Date: 20111027
  Transmission Date: 20120825
  Serious: No
  Sender: FDA-Public Use
  Company Number: US-MYLANLABS-2011S1022279

PATIENT
  Age: 46 Year
  Sex: Female
  Weight: 122.47 kg

DRUGS (11)
  1. TRAMADOL HCL [Concomitant]
     Indication: PAIN
  2. BENTYL [Concomitant]
     Indication: IRRITABLE BOWEL SYNDROME
  3. RISPERDAL [Concomitant]
     Indication: PERSONALITY DISORDER
  4. OMEPRAZOLE [Concomitant]
     Indication: GASTROOESOPHAGEAL REFLUX DISEASE
  5. KLOR-CON [Concomitant]
  6. ASPIRIN [Concomitant]
  7. CYCLOBENZAPRINE HCL [Suspect]
     Indication: MUSCLE SPASMS
     Dosage: X 2 DOSES ONLY
     Route: 048
     Dates: start: 20111025, end: 20111026
  8. FUROSEMIDE [Concomitant]
     Indication: OEDEMA
  9. CETIRIZINE [Concomitant]
     Indication: HYPERSENSITIVITY
  10. TOPAMAX [Concomitant]
     Indication: GRAND MAL CONVULSION
     Dates: start: 20030101
  11. ETODOLAC [Concomitant]
     Indication: OEDEMA
     Dates: start: 20100101

REACTIONS (2)
  - CRYING [None]
  - SUICIDAL IDEATION [None]
